FAERS Safety Report 8908258 (Version 2)
Quarter: 2012Q4

REPORT INFORMATION
  Report Type: 
  Country: BR (occurrence: BR)
  Receive Date: 20121114
  Receipt Date: 20121126
  Transmission Date: 20130627
  Serious: Yes (Hospitalization)
  Sender: FDA-Public Use
  Company Number: BR-ASTRAZENECA-2012SE29544

PATIENT
  Sex: Male

DRUGS (6)
  1. ATENOLOL [Suspect]
     Indication: HYPERTENSION
     Dosage: DAILY
     Route: 048
  2. BRILINTA [Suspect]
     Route: 048
     Dates: start: 201203, end: 2012
  3. SIMVASTATIN [Concomitant]
     Route: 048
  4. ASA [Concomitant]
     Route: 048
  5. RANITIDINE [Concomitant]
     Route: 048
  6. UNKNOWN [Concomitant]
     Indication: HYPERTENSION
     Route: 048

REACTIONS (1)
  - Dizziness [Recovered/Resolved]
